FAERS Safety Report 8992165 (Version 1)
Quarter: 2012Q4

REPORT INFORMATION
  Report Type: Report from Study
  Country: CA (occurrence: CA)
  Receive Date: 20121231
  Receipt Date: 20121231
  Transmission Date: 20130627
  Serious: Yes (Other)
  Sender: FDA-Public Use
  Company Number: CA-ROCHE-1171613

PATIENT
  Age: 16 Year
  Sex: Female
  Weight: 54.03 kg

DRUGS (2)
  1. OMALIZUMAB [Suspect]
     Indication: ASTHMA
     Dosage: 375 mg, UNK
     Route: 058
     Dates: start: 20060712
  2. MEDICATION (UNK INGREDIENT) [Concomitant]
     Indication: PRODUCT USED FOR UNKNOWN INDICATION

REACTIONS (14)
  - Syncope [Not Recovered/Not Resolved]
  - Hypotension [Unknown]
  - Asthma [Unknown]
  - Asthma [Unknown]
  - Vascular injury [Unknown]
  - Influenza [Recovered/Resolved]
  - Tracheitis [Recovered/Resolved]
  - Bronchitis [Recovered/Resolved]
  - Epistaxis [Recovered/Resolved]
  - Vomiting [Unknown]
  - Sputum discoloured [Unknown]
  - Nasopharyngitis [Unknown]
  - Nausea [Unknown]
  - Dizziness [Unknown]
